FAERS Safety Report 24910412 (Version 1)
Quarter: 2025Q1

REPORT INFORMATION
  Report Type: Spontaneous
  Country: ZA (occurrence: ZA)
  Receive Date: 20250131
  Receipt Date: 20250131
  Transmission Date: 20250408
  Serious: Yes (Other)
  Sender: SANOFI AVENTIS
  Company Number: ZA-SA-2025SA029810

PATIENT
  Sex: Male

DRUGS (2)
  1. FABRAZYME [Suspect]
     Active Substance: AGALSIDASE BETA
     Indication: Fabry^s disease
     Dates: end: 202405
  2. FABRAZYME [Suspect]
     Active Substance: AGALSIDASE BETA

REACTIONS (4)
  - Prostate cancer [Unknown]
  - Lower respiratory tract infection [Unknown]
  - Influenza like illness [Unknown]
  - Hypersensitivity [Unknown]

NARRATIVE: CASE EVENT DATE: 20240101
